FAERS Safety Report 6059765-8 (Version None)
Quarter: 2009Q1

REPORT INFORMATION
  Report Type: 
  Country: None (occurrence: None)
  Receive Date: 20090130
  Receipt Date: 20090123
  Transmission Date: 20090719
  Serious: Yes (Other)
  Sender: FDA-Public Use
  Company Number: GB-GILEAD-2009-0019996

PATIENT

DRUGS (1)
  1. ATRIPLA [Suspect]

REACTIONS (1)
  - VIRAL LOAD INCREASED [None]
